FAERS Safety Report 13440424 (Version 2)
Quarter: 2017Q2

REPORT INFORMATION
  Report Type: Spontaneous
  Country: CH (occurrence: CH)
  Receive Date: 20170413
  Receipt Date: 20170420
  Transmission Date: 20170830
  Serious: Yes (Death, Hospitalization, Other)
  Sender: FDA-Public Use
  Company Number: CH-ACTELION-A-CH2017-152128

PATIENT
  Age: 55 Year
  Sex: Male

DRUGS (12)
  1. OPSUMIT [Suspect]
     Active Substance: MACITENTAN
     Indication: PULMONARY ARTERIAL HYPERTENSION
     Dosage: 10 MG, QD
     Route: 048
     Dates: start: 201509, end: 20161202
  2. REMODULIN [Suspect]
     Active Substance: TREPROSTINIL
     Indication: PULMONARY HYPERTENSION
     Dosage: UNK
     Route: 042
     Dates: start: 20160914, end: 20161202
  3. METOLAZON [Concomitant]
     Active Substance: METOLAZONE
     Dosage: 5 MG, QD
  4. REMODULIN [Suspect]
     Active Substance: TREPROSTINIL
     Dosage: 1.2 MG, QD
     Route: 042
     Dates: start: 20161030
  5. REVATIO [Suspect]
     Active Substance: SILDENAFIL CITRATE
     Indication: PULMONARY ARTERIAL HYPERTENSION
     Dosage: 20 MG, TID
     Route: 048
     Dates: start: 201607, end: 20161202
  6. OXYGEN. [Concomitant]
     Active Substance: OXYGEN
     Dosage: UNK
     Dates: start: 2013
  7. VENTAVIS [Suspect]
     Active Substance: ILOPROST
     Indication: PULMONARY ARTERIAL HYPERTENSION
     Dosage: UNK
     Route: 055
     Dates: end: 201607
  8. TOREM [Concomitant]
     Active Substance: TORSEMIDE
     Dosage: 10 MG, BID
     Dates: end: 20161202
  9. ALDACTONE [Concomitant]
     Active Substance: SPIRONOLACTONE
     Dosage: 50 MG, QD
  10. KCL HAUSMANN [Concomitant]
     Dosage: 2 DF, BID
  11. MAGNESIOCARD [Concomitant]
     Active Substance: MAGNESIUM ASPARTATE HYDROCHLORIDE
     Dosage: 5 MMOL, BID
  12. MARCOUMAR [Concomitant]
     Active Substance: PHENPROCOUMON
     Dosage: 3 MG, PRN

REACTIONS (15)
  - Right ventricular failure [Fatal]
  - Foreign body [Unknown]
  - Disease complication [Unknown]
  - Retroperitoneal fibrosis [Unknown]
  - Staphylococcus test positive [Unknown]
  - Device related sepsis [Unknown]
  - Wound [Unknown]
  - Atrial fibrillation [Fatal]
  - Atrial flutter [Fatal]
  - Catheter placement [Unknown]
  - Infection [Unknown]
  - Medical device removal [Unknown]
  - Pneumonia [Unknown]
  - Skin disorder [Unknown]
  - Skin warm [Unknown]

NARRATIVE: CASE EVENT DATE: 201611
